FAERS Safety Report 5843309-7 (Version None)
Quarter: 2008Q3

REPORT INFORMATION
  Report Type: 
  Country: None (occurrence: None)
  Receive Date: 20080813
  Receipt Date: 20080811
  Transmission Date: 20090109
  Serious: Yes (Disabling)
  Sender: FDA-Public Use
  Company Number: ES-BAYER-200813936GPV

PATIENT
  Age: 47 Year
  Sex: Male

DRUGS (1)
  1. ADIRO 300 MG/ ASA [Suspect]
     Indication: ARRHYTHMIA
     Route: 048

REACTIONS (4)
  - DEAFNESS [None]
  - DIZZINESS [None]
  - OTOSALPINGITIS [None]
  - TINNITUS [None]
